FAERS Safety Report 7383062-1 (Version None)
Quarter: 2011Q1

REPORT INFORMATION
  Report Type: 
  Country: None (occurrence: None)
  Receive Date: 20110330
  Receipt Date: 20110325
  Transmission Date: 20110831
  Serious: No
  Sender: FDA-Public Use
  Company Number: US-PFIZER INC-2011067462

PATIENT
  Sex: Female
  Weight: 70.295 kg

DRUGS (1)
  1. LYRICA [Suspect]

REACTIONS (8)
  - MUSCLE TIGHTNESS [None]
  - NAUSEA [None]
  - DIZZINESS [None]
  - ASTHENIA [None]
  - DIARRHOEA [None]
  - VOMITING [None]
  - NERVOUSNESS [None]
  - DRUG WITHDRAWAL SYNDROME [None]
